FAERS Safety Report 19514246 (Version 1)
Quarter: 2021Q3

REPORT INFORMATION
  Report Type: Spontaneous
  Country: US (occurrence: US)
  Receive Date: 20210709
  Receipt Date: 20210709
  Transmission Date: 20211014
  Serious: Yes (Hospitalization)
  Sender: FDA-Public Use
  Company Number: US-TEVA-2021-US-1930428

PATIENT
  Age: 57 Year
  Sex: Female
  Weight: 88.45 kg

DRUGS (7)
  1. PREMARIN VAGINAL [Suspect]
     Active Substance: ESTROGENS, CONJUGATED
     Dosage: APPLY PEA SIZED AMOUNT TO AFFECTED AREA 2?3 TIMES A WEEK
     Route: 067
     Dates: start: 20200308
  2. OXYBUTYNIN ER [Suspect]
     Active Substance: OXYBUTYNIN
     Dosage: AT  NIGHT
     Route: 065
  3. ROSUVASTATIN. [Suspect]
     Active Substance: ROSUVASTATIN
     Dosage: 20 MILLIGRAM DAILY;
     Route: 065
  4. LEVETIRACETAM. [Suspect]
     Active Substance: LEVETIRACETAM
     Indication: SEIZURE
     Route: 065
  5. MIRTAZAPINE. [Suspect]
     Active Substance: MIRTAZAPINE
     Indication: DIABETES MELLITUS
     Route: 065
  6. FEROSUL [Suspect]
     Active Substance: FERROUS SULFATE
     Route: 065
  7. GLIMEPIRIDE. [Suspect]
     Active Substance: GLIMEPIRIDE
     Indication: DIABETES MELLITUS
     Route: 065

REACTIONS (6)
  - Dysuria [Unknown]
  - Pain [Unknown]
  - Vaginal haemorrhage [Unknown]
  - Sleep disorder [Not Recovered/Not Resolved]
  - Vulvovaginal pruritus [Unknown]
  - Hospitalisation [Unknown]

NARRATIVE: CASE EVENT DATE: 20200308
